FAERS Safety Report 18869859 (Version 1)
Quarter: 2021Q1

REPORT INFORMATION
  Report Type: Spontaneous
  Country: IT (occurrence: IT)
  Receive Date: 20210210
  Receipt Date: 20210210
  Transmission Date: 20210420
  Serious: Yes (Hospitalization)
  Sender: FDA-Public Use
  Company Number: IT-DENTSPLY-2021SCDP000034

PATIENT
  Age: 8 Year
  Sex: Male

DRUGS (3)
  1. SAIZEN [Interacting]
     Active Substance: SOMATROPIN
     Indication: CHRONIC KIDNEY DISEASE
     Dosage: 08 MILLIGRAM PER ML
     Dates: start: 20200909
  2. SAIZEN [Interacting]
     Active Substance: SOMATROPIN
     Dosage: 0.95 MILLIGRAM, THERAPY START DATE: 20?JAN?2021
     Route: 058
     Dates: start: 20210120
  3. PRILOCAINE AND LIDOCAINE [Suspect]
     Active Substance: LIDOCAINE\PRILOCAINE
     Indication: LOCAL ANAESTHESIA
     Dosage: OINTMENT

REACTIONS (3)
  - Therapy non-responder [Unknown]
  - Drug interaction [Unknown]
  - Hospitalisation [Recovered/Resolved]

NARRATIVE: CASE EVENT DATE: 20201230
